FAERS Safety Report 16038921 (Version 1)
Quarter: 2019Q1

REPORT INFORMATION
  Report Type: Report from Study
  Country: CA (occurrence: CA)
  Receive Date: 20190306
  Receipt Date: 20190306
  Transmission Date: 20190418
  Serious: Yes (Other)
  Sender: FDA-Public Use
  Company Number: PHHY2019CA048517

PATIENT
  Sex: Female

DRUGS (4)
  1. PROTOPIC [Concomitant]
     Active Substance: TACROLIMUS
     Indication: PATERNAL EXPOSURE DURING PREGNANCY
     Dosage: UNK
     Route: 050
  2. DOVOBET [Concomitant]
     Active Substance: BETAMETHASONE\CALCIPOTRIENE
     Indication: PATERNAL EXPOSURE DURING PREGNANCY
     Dosage: UNK
     Route: 050
  3. OTEZLA [Concomitant]
     Active Substance: APREMILAST
     Indication: PATERNAL EXPOSURE DURING PREGNANCY
     Dosage: UNK
     Route: 050
  4. COSENTYX [Suspect]
     Active Substance: SECUKINUMAB
     Indication: PATERNAL EXPOSURE DURING PREGNANCY
     Dosage: UNK
     Route: 050

REACTIONS (2)
  - Abortion spontaneous [Unknown]
  - Exposure via partner [Unknown]
